FAERS Safety Report 6346562-9 (Version None)
Quarter: 2009Q3

REPORT INFORMATION
  Report Type: 
  Country: None (occurrence: None)
  Receive Date: 20090909
  Receipt Date: 20090831
  Transmission Date: 20100115
  Serious: Yes (Hospitalization, Other)
  Sender: FDA-Public Use
  Company Number: US-ELI_LILLY_AND_COMPANY-US200904000155

PATIENT
  Sex: Female
  Weight: 46.712 kg

DRUGS (14)
  1. CYMBALTA [Suspect]
     Indication: NEUROPATHY PERIPHERAL
     Dosage: 1 D/F, UNK
     Dates: start: 20050510, end: 20050517
  2. CYMBALTA [Suspect]
     Dosage: 60 MG, DAILY (1/D)
     Dates: start: 20050517, end: 20050522
  3. CYMBALTA [Suspect]
     Dosage: 30 MG, UNK
     Dates: start: 20050501
  4. TYLENOL /SCH/ [Concomitant]
     Indication: PAIN
     Dosage: 500 MG, AS NEEDED
  5. PERCOCET [Concomitant]
     Indication: BACK PAIN
     Dosage: 1 D/F, OTHER
  6. ASTELIN [Concomitant]
     Indication: SEASONAL ALLERGY
     Route: 045
  7. NASACORT [Concomitant]
     Indication: SEASONAL ALLERGY
     Dosage: UNK, AS NEEDED
  8. MOBIC [Concomitant]
     Indication: PAIN
  9. ALLEGRA [Concomitant]
     Indication: SEASONAL ALLERGY
  10. FLEXERIL [Concomitant]
     Indication: MUSCLE SPASMS
  11. CALCIUM [Concomitant]
  12. ETHANOL [Concomitant]
  13. NICOTINE [Concomitant]
     Dosage: UNK, UNK
  14. OTHER ANTIDEPRESSANTS [Concomitant]

REACTIONS (12)
  - ALANINE AMINOTRANSFERASE INCREASED [None]
  - ASPARTATE AMINOTRANSFERASE INCREASED [None]
  - BLOOD BILIRUBIN INCREASED [None]
  - BLOOD CREATINE PHOSPHOKINASE INCREASED [None]
  - BLOOD PRESSURE SYSTOLIC DECREASED [None]
  - HEPATIC FAILURE [None]
  - HEPATITIS ACUTE [None]
  - INTERNATIONAL NORMALISED RATIO INCREASED [None]
  - NOCTURIA [None]
  - OFF LABEL USE [None]
  - RENAL FAILURE ACUTE [None]
  - URINARY TRACT INFECTION [None]
